FAERS Safety Report 17273482 (Version 1)
Quarter: 2020Q1

REPORT INFORMATION
  Report Type: Spontaneous
  Country: US (occurrence: US)
  Receive Date: 20200115
  Receipt Date: 20200115
  Transmission Date: 20200409
  Serious: Yes (Disabling)
  Sender: FDA-Public Use
  Company Number: None

PATIENT
  Age: 13 Year
  Sex: Male
  Weight: 40.5 kg

DRUGS (4)
  1. QVAR REDIHALER [Suspect]
     Active Substance: BECLOMETHASONE DIPROPIONATE
     Indication: ASTHMA
     Dosage: ?          QUANTITY:2 INHALATION(S);?
     Route: 055
  2. GENERIC ZYRTEC [Concomitant]
     Active Substance: CETIRIZINE HYDROCHLORIDE
  3. DAILY VITAMIN [Concomitant]
     Active Substance: VITAMINS
  4. NUCALA [Concomitant]
     Active Substance: MEPOLIZUMAB

REACTIONS (3)
  - Asthma [None]
  - Incorrect dose administered by device [None]
  - Drug delivery system issue [None]

NARRATIVE: CASE EVENT DATE: 20200114
